FAERS Safety Report 5709981-7 (Version None)
Quarter: 2008Q2

REPORT INFORMATION
  Report Type: 
  Country: None (occurrence: None)
  Receive Date: 20080418
  Receipt Date: 20070705
  Transmission Date: 20081010
  Serious: No
  Sender: FDA-Public Use
  Company Number: US-ASTRAZENECA-2007UW15818

PATIENT
  Age: 64 Year
  Sex: Female
  Weight: 51.3 kg

DRUGS (6)
  1. TOPROL-XL [Suspect]
     Indication: BLOOD PRESSURE
     Route: 048
     Dates: start: 20070407
  2. ZYRTEC [Concomitant]
     Indication: HYPERSENSITIVITY
  3. FOSAMAX [Concomitant]
     Indication: OSTEOPOROSIS
  4. LIPITOR [Concomitant]
     Dates: start: 20070201
  5. VAGIFEM VAGINAL SUPPOSITORIES [Concomitant]
  6. B COMPLEX VITAMINS [Concomitant]

REACTIONS (9)
  - CHEST DISCOMFORT [None]
  - CONTUSION [None]
  - DIZZINESS [None]
  - DYSPNOEA [None]
  - EMPHYSEMA [None]
  - NODULE [None]
  - PALPITATIONS [None]
  - PULMONARY CONGESTION [None]
  - THROAT TIGHTNESS [None]
